FAERS Safety Report 7242072-5 (Version None)
Quarter: 2011Q1

REPORT INFORMATION
  Report Type: 
  Country: None (occurrence: None)
  Receive Date: 20110124
  Receipt Date: 20110114
  Transmission Date: 20110831
  Serious: Yes (Hospitalization)
  Sender: FDA-Public Use
  Company Number: US-ASTRAZENECA-2011SE02734

PATIENT
  Sex: Female

DRUGS (5)
  1. LISINOPRIL [Concomitant]
  2. METFORMIN HCL [Concomitant]
  3. CRESTOR [Concomitant]
     Route: 048
  4. PRILOSEC OTC [Suspect]
     Route: 048
  5. NEXIUM [Suspect]
     Indication: GASTROOESOPHAGEAL REFLUX DISEASE
     Route: 048
     Dates: start: 19980101, end: 20100101

REACTIONS (6)
  - DYSPEPSIA [None]
  - GASTROINTESTINAL TRACT MUCOSAL DISCOLOURATION [None]
  - DRUG DOSE OMISSION [None]
  - THROAT IRRITATION [None]
  - COLONIC POLYP [None]
  - DYSPHAGIA [None]
